FAERS Safety Report 9346397 (Version 1)
Quarter: 2013Q2

REPORT INFORMATION
  Report Type: Spontaneous
  Country: US (occurrence: US)
  Receive Date: 20130613
  Receipt Date: 20130613
  Transmission Date: 20140414
  Serious: Yes (Other)
  Sender: FDA-Public Use
  Company Number: US-BAYER-2013-072208

PATIENT
  Age: 59 Year
  Sex: Female
  Weight: 57.6 kg

DRUGS (1)
  1. BAYER EXTRA STRENGTH BACK + BODY PAIN [Suspect]
     Indication: ANALGESIC THERAPY
     Dosage: 1 DF, PRN
     Route: 048
     Dates: start: 2008

REACTIONS (5)
  - Gait disturbance [Recovered/Resolved]
  - Pain [Not Recovered/Not Resolved]
  - Feeling abnormal [Recovered/Resolved]
  - Dizziness [Not Recovered/Not Resolved]
  - Drug administration error [None]
